FAERS Safety Report 9203561 (Version 1)
Quarter: 2013Q1

REPORT INFORMATION
  Report Type: Spontaneous
  Country: US (occurrence: None)
  Receive Date: 20120709
  Receipt Date: 20120709
  Transmission Date: 20140127
  Serious: Yes (Other)
  Sender: FDA-Public Use
  Company Number: PHHY2011US68865

PATIENT
  Age: 53 Year
  Sex: Female
  Weight: 146 kg

DRUGS (1)
  1. GLEEVEC [Suspect]
     Indication: CHRONIC MYELOID LEUKAEMIA
     Route: 048
     Dates: start: 20110706, end: 20110722

REACTIONS (3)
  - Thrombocytopenia [None]
  - Periorbital disorder [None]
  - Rash [None]
